FAERS Safety Report 6682557-3 (Version None)
Quarter: 2010Q2

REPORT INFORMATION
  Report Type: 
  Country: None (occurrence: None)
  Receive Date: 20100415
  Receipt Date: 20100413
  Transmission Date: 20101027
  Serious: Yes (Other)
  Sender: FDA-Public Use
  Company Number: ES-ROXANE LABORATORIES, INC.-2010-DE-02116GD

PATIENT
  Age: 52 Year
  Sex: Female

DRUGS (1)
  1. CODEINE SULFATE [Suspect]
     Indication: ALLERGY TEST
     Dosage: 7.5 MG
     Route: 048

REACTIONS (3)
  - DIZZINESS [None]
  - ERYTHEMA [None]
  - PRURITUS [None]
